FAERS Safety Report 8856020 (Version 1)
Quarter: 2012Q4

REPORT INFORMATION
  Report Type: 
  Country: US (occurrence: US)
  Receive Date: 20121023
  Receipt Date: 20121023
  Transmission Date: 20130627
  Serious: No
  Sender: FDA-Public Use
  Company Number: US-AMGEN-USASP2012058359

PATIENT
  Sex: Female
  Weight: 63.49 kg

DRUGS (5)
  1. ENBREL [Suspect]
     Indication: PRODUCT USED FOR UNKNOWN INDICATION
     Dosage: 25 mg, twice weekly
     Route: 058
  2. URSODIOL [Concomitant]
     Dosage: 250 mg, UNK
  3. CO Q 10                            /00517201/ [Concomitant]
     Dosage: 100 mg, UNK
  4. ALPHA LIPOIC ACID [Concomitant]
     Dosage: 200 mg, UNK
  5. CLARITIN-D [Concomitant]
     Dosage: 10-240 mg

REACTIONS (2)
  - Rhinorrhoea [Unknown]
  - Injection site bruising [Unknown]
